FAERS Safety Report 9290810 (Version 1)
Quarter: 2013Q2

REPORT INFORMATION
  Report Type: Spontaneous
  Country: US (occurrence: None)
  Receive Date: 20130513
  Receipt Date: 20130513
  Transmission Date: 20140414
  Serious: Yes (Hospitalization, Other)
  Sender: FDA-Public Use
  Company Number: TPA2013A03009

PATIENT
  Age: 78 Year
  Sex: Male
  Weight: 97.52 kg

DRUGS (3)
  1. ULORIC (FEBUXOSTAT) [Suspect]
     Indication: HYPERURICAEMIA
     Dosage: 40 MG, 1 IN 1 D, PER ORAL
     Route: 048
     Dates: start: 201004, end: 201304
  2. COLCRYS [Suspect]
     Indication: GOUT
     Route: 048
     Dates: end: 20130402
  3. NORCO (PARACETAMOL, HYDROCODONE BITARTRATE) [Concomitant]

REACTIONS (6)
  - Oedema peripheral [None]
  - Blister [None]
  - Skin ulcer [None]
  - Gout [None]
  - Cellulitis [None]
  - Sepsis [None]
